FAERS Safety Report 25952099 (Version 1)
Quarter: 2025Q4

REPORT INFORMATION
  Report Type: Spontaneous
  Country: EU (occurrence: EU)
  Receive Date: 20251023
  Receipt Date: 20251023
  Transmission Date: 20260118
  Serious: Yes (Hospitalization, Other)
  Sender: STRIDES
  Company Number: EU-STRIDES ARCOLAB LIMITED-2025SP013211

PATIENT
  Age: 57 Year
  Sex: Male

DRUGS (5)
  1. METHOTREXATE [Suspect]
     Active Substance: METHOTREXATE
     Indication: Maxillofacial sinus neoplasm
     Dosage: DAY 1, 4 CYCLES, EVERY TWO WEEKS
     Route: 065
     Dates: start: 201712
  2. CISPLATIN [Suspect]
     Active Substance: CISPLATIN
     Indication: Maxillofacial sinus neoplasm
     Dosage: 100 MILLIGRAM/SQ. METER
     Route: 065
     Dates: end: 201701
  3. CISPLATIN [Suspect]
     Active Substance: CISPLATIN
     Dosage: DAY 1, 4 CYCLES
     Route: 065
     Dates: start: 201708, end: 201711
  4. DOCETAXEL [Suspect]
     Active Substance: DOCETAXEL
     Indication: Maxillofacial sinus neoplasm
     Dosage: DAY 1, 5 CYCLES
     Route: 042
     Dates: start: 201703, end: 201706
  5. FLUOROURACIL [Suspect]
     Active Substance: FLUOROURACIL
     Indication: Maxillofacial sinus neoplasm
     Dosage: DAY 1-4, 4 CYCLES
     Route: 065
     Dates: start: 201708, end: 201711

REACTIONS (5)
  - Hyponatraemia [Unknown]
  - Hypochloraemia [Unknown]
  - Hyperuricaemia [Unknown]
  - White blood cell count increased [Unknown]
  - Neoplasm progression [Unknown]
